FAERS Safety Report 10366525 (Version 3)
Quarter: 2014Q4

REPORT INFORMATION
  Report Type: Spontaneous
  Country: IT (occurrence: IT)
  Receive Date: 20140806
  Receipt Date: 20141124
  Transmission Date: 20150528
  Serious: Yes (Hospitalization, Other)
  Sender: FDA-Public Use
  Company Number: IT-PFIZER INC-2014217157

PATIENT
  Age: 32 Year
  Sex: Female

DRUGS (3)
  1. SERTRALINE HCL [Suspect]
     Active Substance: SERTRALINE HYDROCHLORIDE
     Dosage: 30 DF, UNK
     Route: 048
     Dates: start: 20140714
  2. TRIAZOLAM. [Suspect]
     Active Substance: TRIAZOLAM
     Dosage: 20 DF
     Route: 048
     Dates: start: 20140714
  3. DIAZEPAM. [Suspect]
     Active Substance: DIAZEPAM
     Dosage: 20 ML, TOTAL
     Route: 048
     Dates: start: 20140714

REACTIONS (6)
  - Agitation [Recovering/Resolving]
  - Bundle branch block right [Recovering/Resolving]
  - Intentional self-injury [Recovering/Resolving]
  - Drug abuse [Recovering/Resolving]
  - Bradycardia [Recovering/Resolving]
  - Depression [Unknown]

NARRATIVE: CASE EVENT DATE: 2014
